FAERS Safety Report 7369088-2 (Version None)
Quarter: 2011Q1

REPORT INFORMATION
  Report Type: 
  Country: None (occurrence: None)
  Receive Date: 20110323
  Receipt Date: 20110224
  Transmission Date: 20110831
  Serious: No
  Sender: FDA-Public Use
  Company Number: US-B.I. PHARMACEUTICALS,INC./RIDGEFIELD-2011-BP-06603BP

PATIENT
  Age: 71 Year
  Sex: Male

DRUGS (6)
  1. MULTAQ [Concomitant]
  2. ASPIRIN [Concomitant]
  3. PRADAXA [Suspect]
     Dosage: 300 MG
     Route: 048
     Dates: start: 20110215
  4. DILTIAZEM [Concomitant]
  5. FENOFIBRATE [Concomitant]
  6. SIMVASTATIN [Concomitant]

REACTIONS (2)
  - INTERNATIONAL NORMALISED RATIO INCREASED [None]
  - RECTAL HAEMORRHAGE [None]
